FAERS Safety Report 8859175 (Version 2)
Quarter: 2013Q1

REPORT INFORMATION
  Report Type: Spontaneous
  Country: CA (occurrence: None)
  Receive Date: 20121023
  Receipt Date: 20121113
  Transmission Date: 20140127
  Serious: Yes (Other)
  Sender: FDA-Public Use
  Company Number: TPA2012A08126

PATIENT
  Age: 57 Year
  Sex: Female

DRUGS (1)
  1. DEXILANT [Suspect]
     Indication: OESOPHAGITIS
     Route: 048
     Dates: start: 201108, end: 20110929

REACTIONS (2)
  - Colitis ulcerative [None]
  - Diarrhoea [None]
